FAERS Safety Report 24095046 (Version 1)
Quarter: 2024Q3

REPORT INFORMATION
  Report Type: Spontaneous
  Country: US (occurrence: US)
  Receive Date: 20240716
  Receipt Date: 20240716
  Transmission Date: 20241017
  Serious: Yes (Hospitalization, Other)
  Sender: AMNEAL
  Company Number: US-AMNEAL PHARMACEUTICALS-2024-AMRX-02537

PATIENT
  Age: 55 Year
  Sex: Male

DRUGS (20)
  1. PREDNISONE [Suspect]
     Active Substance: PREDNISONE
     Indication: Prophylaxis
     Dosage: 55 MILLIGRAM, QD
     Route: 065
     Dates: start: 20240312, end: 20240325
  2. PREDNISONE [Suspect]
     Active Substance: PREDNISONE
     Dosage: 50 MILLIGRAM, QD
     Route: 065
     Dates: start: 20240326, end: 20240402
  3. PREDNISONE [Suspect]
     Active Substance: PREDNISONE
     Dosage: 45 MILLIGRAM, QD
     Route: 065
     Dates: start: 20240403, end: 20240409
  4. PREDNISONE [Suspect]
     Active Substance: PREDNISONE
     Dosage: 40 MILLIGRAM, QD
     Route: 065
     Dates: start: 20240409, end: 20240411
  5. PREDNISONE [Suspect]
     Active Substance: PREDNISONE
     Dosage: 35 MILLIGRAM, QD
     Route: 065
     Dates: start: 20240412, end: 20240419
  6. PREDNISONE [Suspect]
     Active Substance: PREDNISONE
     Dosage: 80 MILLIGRAM, QD
     Route: 065
     Dates: start: 20240424, end: 20240430
  7. PREDNISONE [Suspect]
     Active Substance: PREDNISONE
     Dosage: 80 MILLIGRAM, QD
     Route: 065
     Dates: start: 20240502, end: 20240502
  8. PREDNISONE [Suspect]
     Active Substance: PREDNISONE
     Dosage: 55 MILLIGRAM, QD
     Route: 065
     Dates: start: 20240506, end: 20240508
  9. PREDNISONE [Suspect]
     Active Substance: PREDNISONE
     Dosage: 50 MILLIGRAM, BID
     Route: 065
     Dates: start: 20240509, end: 20240509
  10. PREDNISONE [Suspect]
     Active Substance: PREDNISONE
     Dosage: 45 MILLIGRAM, BID
     Route: 065
     Dates: start: 20240510, end: 20240510
  11. PREDNISONE [Suspect]
     Active Substance: PREDNISONE
     Dosage: 35 MILLIGRAM, BID
     Route: 065
     Dates: start: 20240512, end: 20240512
  12. PREDNISONE [Suspect]
     Active Substance: PREDNISONE
     Dosage: 30 MILLIGRAM, BID
     Route: 065
     Dates: start: 20240513, end: 20240513
  13. PREDNISONE [Suspect]
     Active Substance: PREDNISONE
     Dosage: 25 MILLIGRAM, BID
     Route: 065
     Dates: start: 20240514, end: 20240514
  14. PREDNISONE [Suspect]
     Active Substance: PREDNISONE
     Dosage: 20 MILLIGRAM, BID
     Route: 065
     Dates: start: 20240515, end: 20240515
  15. PREDNISONE [Suspect]
     Active Substance: PREDNISONE
     Dosage: 15 MILLIGRAM, BID
     Route: 065
     Dates: start: 20240516, end: 20240516
  16. PREDNISONE [Suspect]
     Active Substance: PREDNISONE
     Dosage: 25 MILLIGRAM, BID
     Route: 065
     Dates: start: 20240517, end: 20240528
  17. PREDNISONE [Suspect]
     Active Substance: PREDNISONE
     Dosage: 40 MILLIGRAM, BID
     Route: 065
     Dates: start: 20240528, end: 20240620
  18. PREDNISONE [Suspect]
     Active Substance: PREDNISONE
     Dosage: 35 MILLIGRAM, BID
     Route: 065
     Dates: start: 20240621
  19. RITUXIMAB [Suspect]
     Active Substance: RITUXIMAB
     Indication: Prophylaxis
     Dosage: UNK
     Route: 065
  20. SIROLIMUS [Suspect]
     Active Substance: SIROLIMUS
     Indication: Prophylaxis
     Dosage: UNK
     Route: 065

REACTIONS (15)
  - Hypovolaemic shock [Unknown]
  - Multiple organ dysfunction syndrome [Unknown]
  - Sepsis [Unknown]
  - Bacteraemia [Recovered/Resolved]
  - Bacteraemia [Unknown]
  - Orthostatic hypotension [Unknown]
  - Anal incontinence [Unknown]
  - Fatigue [Unknown]
  - Dyspnoea [Unknown]
  - Diarrhoea [Unknown]
  - Back pain [Unknown]
  - Asthenia [Unknown]
  - Fatigue [Unknown]
  - Abdominal discomfort [Unknown]
  - Pancreatitis acute [Recovered/Resolved]

NARRATIVE: CASE EVENT DATE: 20240507
